FAERS Safety Report 5608112-1 (Version None)
Quarter: 2008Q1

REPORT INFORMATION
  Report Type: 
  Country: None (occurrence: None)
  Receive Date: 20080130
  Receipt Date: 20080118
  Transmission Date: 20080703
  Serious: Yes (Death, Life-Threatening, Hospitalization, Other)
  Sender: FDA-Public Use
  Company Number: DE-ROCHE-539205

PATIENT
  Age: 63 Year
  Sex: Female
  Weight: 53.1 kg

DRUGS (4)
  1. XELODA [Suspect]
     Route: 048
     Dates: start: 20071206, end: 20071218
  2. LYRICA [Concomitant]
  3. TARGIN [Concomitant]
  4. PAROXAT [Concomitant]

REACTIONS (12)
  - ABNORMAL CLOTTING FACTOR [None]
  - BLOOD CALCIUM ABNORMAL [None]
  - BONE MARROW FAILURE [None]
  - COLITIS [None]
  - DIARRHOEA [None]
  - GASTROINTESTINAL TOXICITY [None]
  - NEUTROPENIA [None]
  - PANCYTOPENIA [None]
  - SEPTIC SHOCK [None]
  - SYSTEMIC INFLAMMATORY RESPONSE SYNDROME [None]
  - THROMBOCYTOPENIA [None]
  - WEIGHT DECREASED [None]
